FAERS Safety Report 13703236 (Version 1)
Quarter: 2017Q2

REPORT INFORMATION
  Report Type: Spontaneous
  Country: FR (occurrence: FR)
  Receive Date: 20170629
  Receipt Date: 20170629
  Transmission Date: 20170830
  Serious: Yes (Life-Threatening, Other)
  Sender: FDA-Public Use
  Company Number: FR-MYLANLABS-2017M1038300

PATIENT

DRUGS (3)
  1. CIPROFLOXACIN MYLAN 500 MG [Suspect]
     Active Substance: CIPROFLOXACIN
     Indication: OSTEITIS
     Dosage: 1 DF, QD
     Route: 048
     Dates: start: 20170601, end: 20170603
  2. LINEZOLIDE [Suspect]
     Active Substance: LINEZOLID
     Indication: OSTEITIS
     Dosage: 1 DF, BID
     Route: 048
     Dates: start: 20170531, end: 20170603
  3. CEFEPIME [Suspect]
     Active Substance: CEFEPIME HYDROCHLORIDE
     Indication: OSTEITIS
     Dosage: 1 G, BID
     Route: 042
     Dates: start: 20170531, end: 20170603

REACTIONS (1)
  - Epileptic encephalopathy [Not Recovered/Not Resolved]

NARRATIVE: CASE EVENT DATE: 20170603
